FAERS Safety Report 5199394-1 (Version None)
Quarter: 2006Q4

REPORT INFORMATION
  Report Type: 
  Country: None (occurrence: None)
  Receive Date: 20061229
  Receipt Date: 20061220
  Transmission Date: 20070319
  Serious: Yes (Death)
  Sender: FDA-Public Use
  Company Number: MEDI-0005213

PATIENT
  Age: 82 Year
  Sex: Male
  Weight: 89.8122 kg

DRUGS (4)
  1. ETHYOL [Suspect]
     Indication: RADIOTHERAPY
     Dosage: 500 MG, 5 IN 5 D, SUBCUTANEOUS
     Route: 058
     Dates: start: 20060928, end: 20061020
  2. RADIATION THERAPY [Concomitant]
  3. TAXOTERE [Concomitant]
  4. MITOXANTRONE [Concomitant]

REACTIONS (3)
  - MALIGNANT NEOPLASM PROGRESSION [None]
  - PLEURAL EFFUSION [None]
  - PROSTATE CANCER METASTATIC [None]
